FAERS Safety Report 23842371 (Version 1)
Quarter: 2024Q2

REPORT INFORMATION
  Report Type: Spontaneous
  Country: US (occurrence: None)
  Receive Date: 20240509
  Receipt Date: 20240509
  Transmission Date: 20240715
  Serious: Yes (Hospitalization)
  Sender: FDA-Public Use
  Company Number: None

PATIENT
  Sex: Male
  Weight: 169 kg

DRUGS (1)
  1. PEMBROLIZUMAB [Suspect]
     Active Substance: PEMBROLIZUMAB
     Indication: Malignant melanoma
     Dates: start: 20230705, end: 20231018

REACTIONS (10)
  - Liver function test increased [None]
  - Jaundice [None]
  - Aspartate aminotransferase increased [None]
  - Alanine aminotransferase increased [None]
  - Blood alkaline phosphatase increased [None]
  - Blood creatine phosphokinase increased [None]
  - Lipase increased [None]
  - Blood bilirubin increased [None]
  - Drug-induced liver injury [None]
  - Immune-mediated hepatitis [None]

NARRATIVE: CASE EVENT DATE: 20240129
